FAERS Safety Report 4452545-6 (Version None)
Quarter: 2004Q3

REPORT INFORMATION
  Report Type: 
  Country: None (occurrence: None)
  Receive Date: 20040813
  Receipt Date: 20040427
  Transmission Date: 20050211
  Serious: No
  Sender: FDA-Public Use
  Company Number: S04-USA-03385-01

PATIENT
  Age: 80 Year
  Sex: Female

DRUGS (8)
  1. NAMENDA [Suspect]
     Indication: DEMENTIA
     Dosage: 15 MG QD PO
     Route: 048
     Dates: start: 20040412, end: 20040418
  2. NAMENDA [Suspect]
     Indication: DEMENTIA
     Dosage: 20 MG QD PO
     Route: 048
     Dates: start: 20040419, end: 20040426
  3. NAMENDA [Suspect]
     Indication: DEMENTIA
     Dosage: 5 MG QD PO
     Route: 048
     Dates: start: 20040329, end: 20040404
  4. NAMENDA [Suspect]
     Indication: DEMENTIA
     Dosage: 10 MG QD PO
     Route: 048
     Dates: start: 20040405, end: 20040411
  5. GLUCOPHAGE [Concomitant]
  6. ZOLOFT [Concomitant]
  7. DETROL [Concomitant]
  8. STOMACH MEDICATION (NOS) [Concomitant]

REACTIONS (3)
  - HEART RATE INCREASED [None]
  - SOMNOLENCE [None]
  - URINARY TRACT INFECTION [None]
